FAERS Safety Report 9771135 (Version 2)
Quarter: 2013Q4

REPORT INFORMATION
  Report Type: Spontaneous
  Country: US (occurrence: US)
  Receive Date: 20131218
  Receipt Date: 20131218
  Transmission Date: 20140711
  Serious: Yes (Other)
  Sender: FDA-Public Use
  Company Number: US-BAXTER-2013BAX049505

PATIENT
  Sex: Male
  Weight: 115 kg

DRUGS (6)
  1. DIANEAL LOW CALCIUM [Suspect]
     Indication: PERITONEAL DIALYSIS
     Route: 033
     Dates: start: 2012
  2. DIANEAL LOW CALCIUM [Suspect]
     Route: 033
     Dates: start: 2012
  3. DIANEAL LOW CALCIUM [Suspect]
     Route: 033
  4. DIANEAL LOW CALCIUM [Suspect]
     Indication: PERITONEAL DIALYSIS
     Route: 033
     Dates: start: 2012
  5. DIANEAL LOW CALCIUM [Suspect]
     Route: 033
     Dates: start: 2012
  6. DIANEAL LOW CALCIUM [Suspect]
     Route: 033

REACTIONS (2)
  - Weight increased [Recovering/Resolving]
  - Blood pressure increased [Recovering/Resolving]
